FAERS Safety Report 16805393 (Version 1)
Quarter: 2019Q3

REPORT INFORMATION
  Report Type: Spontaneous
  Country: US (occurrence: US)
  Receive Date: 20190724
  Receipt Date: 20190724
  Transmission Date: 20191005
  Serious: Yes (Disabling)
  Sender: FDA-Public Use
  Company Number: None

PATIENT
  Age: 81 Year
  Sex: Male
  Weight: 97.52 kg

DRUGS (5)
  1. LISINOPRIL. [Concomitant]
     Active Substance: LISINOPRIL
  2. DILTIAZEM  ERC 240 MG [Concomitant]
  3. LEVOFLOXACIN 500MG TABLETS-GENERIC FOR LEVAQUIN [Suspect]
     Active Substance: LEVOFLOXACIN
     Indication: BRONCHITIS
     Dosage: ?          QUANTITY:1 TABLET;OTHER FREQUENCY:EACH MORNING;?
     Route: 048
     Dates: start: 20180530, end: 20180607
  4. XARELTO [Concomitant]
     Active Substance: RIVAROXABAN
  5. LEVOTHYROXINE. [Concomitant]
     Active Substance: LEVOTHYROXINE

REACTIONS (8)
  - Paraesthesia [None]
  - Muscle spasms [None]
  - Muscular weakness [None]
  - Myalgia [None]
  - Arthralgia [None]
  - Gait disturbance [None]
  - Neuropathy peripheral [None]
  - Musculoskeletal disorder [None]

NARRATIVE: CASE EVENT DATE: 20180530
